FAERS Safety Report 22831688 (Version 3)
Quarter: 2025Q2

REPORT INFORMATION
  Report Type: Spontaneous
  Country: CA (occurrence: CA)
  Receive Date: 20230817
  Receipt Date: 20250418
  Transmission Date: 20250717
  Serious: Yes (Disabling)
  Sender: AUROBINDO
  Company Number: CA-AUROBINDO-AUR-APL-2023-052633

PATIENT
  Age: 21 Year
  Sex: Male

DRUGS (6)
  1. ARIPIPRAZOLE [Suspect]
     Active Substance: ARIPIPRAZOLE
     Indication: Schizophrenia
     Route: 065
  2. ARIPIPRAZOLE [Suspect]
     Active Substance: ARIPIPRAZOLE
     Indication: Psychotic disorder
     Route: 065
  3. HALOPERIDOL [Suspect]
     Active Substance: HALOPERIDOL
     Indication: Schizophrenia
     Route: 065
  4. HALOPERIDOL [Suspect]
     Active Substance: HALOPERIDOL
     Indication: Psychotic disorder
  5. RISPERIDONE [Suspect]
     Active Substance: RISPERIDONE
     Indication: Schizophrenia
     Route: 065
  6. RISPERIDONE [Suspect]
     Active Substance: RISPERIDONE
     Indication: Psychotic disorder

REACTIONS (10)
  - Drug-genetic interaction [Unknown]
  - Anhedonia [Unknown]
  - Asthenia [Unknown]
  - Extrapyramidal disorder [Unknown]
  - Musculoskeletal stiffness [Unknown]
  - Salivary hypersecretion [Unknown]
  - Somnolence [Unknown]
  - Tremor [Unknown]
  - Treatment failure [Unknown]
  - Product use in unapproved indication [Unknown]
